FAERS Safety Report 17673606 (Version 1)
Quarter: 2020Q2

REPORT INFORMATION
  Report Type: Spontaneous
  Country: FR (occurrence: FR)
  Receive Date: 20200415
  Receipt Date: 20200415
  Transmission Date: 20200714
  Serious: Yes (Death)
  Sender: FDA-Public Use
  Company Number: FR-ANIPHARMA-2020-FR-000111

PATIENT
  Age: 67 Year
  Sex: Male
  Weight: 75 kg

DRUGS (7)
  1. AUGMENTIN [Suspect]
     Active Substance: AMOXICILLIN\CLAVULANATE POTASSIUM
     Dosage: 3 G QD
     Route: 042
     Dates: start: 20200303, end: 20200310
  2. CANDESARTAN. [Suspect]
     Active Substance: CANDESARTAN
     Indication: HYPERTENSION
     Dosage: 8 MG QD
     Route: 048
     Dates: start: 20200310, end: 20200314
  3. EXFORGE [Suspect]
     Active Substance: AMLODIPINE BESYLATE\VALSARTAN
     Dosage: 10 MG/160 MG, 1 DOSAGE FORM DAILY
     Route: 048
     Dates: end: 20200314
  4. DOCETAXEL. [Suspect]
     Active Substance: DOCETAXEL
     Dosage: 76 MG UNK
     Route: 042
     Dates: start: 20200309, end: 20200309
  5. FLUOROURACIL. [Suspect]
     Active Substance: FLUOROURACIL
     Dosage: 2650 MG UNK
     Route: 042
     Dates: start: 20200309, end: 20200309
  6. INDAPAMIDE. [Suspect]
     Active Substance: INDAPAMIDE
     Dosage: 2.5 MG QD
     Route: 048
     Dates: end: 20200314
  7. CISPLATIN. [Suspect]
     Active Substance: CISPLATIN
     Dosage: 76 MG UNK
     Route: 042
     Dates: start: 20200309, end: 20200309

REACTIONS (4)
  - Hepatic ischaemia [Fatal]
  - Hypovolaemic shock [Fatal]
  - Diarrhoea [Fatal]
  - Gastrointestinal ischaemia [Fatal]

NARRATIVE: CASE EVENT DATE: 202003
